FAERS Safety Report 5995311-2 (Version None)
Quarter: 2008Q4

REPORT INFORMATION
  Report Type: 
  Country: None (occurrence: None)
  Receive Date: 20081212
  Receipt Date: 20080925
  Transmission Date: 20090506
  Serious: Yes (Hospitalization)
  Sender: FDA-Public Use
  Company Number: US-ABBOTT-08P-163-0478504-00

PATIENT
  Sex: Male
  Weight: 113.95 kg

DRUGS (7)
  1. HUMIRA [Suspect]
     Indication: RHEUMATOID ARTHRITIS
     Route: 050
     Dates: end: 20080501
  2. HUMIRA [Suspect]
     Route: 050
     Dates: start: 20080505
  3. OXYCODONE HCL [Concomitant]
     Indication: PAIN
     Route: 048
  4. LORTAB [Concomitant]
     Indication: PAIN
     Route: 048
  5. CARISOPRODOL [Concomitant]
     Indication: PAIN
     Route: 048
  6. VALIUM [Concomitant]
     Indication: INSOMNIA
     Route: 048
  7. ADRENOGEL [Concomitant]
     Indication: HORMONE REPLACEMENT THERAPY
     Route: 061

REACTIONS (11)
  - APNOEA [None]
  - AZOTAEMIA [None]
  - DRUG INEFFECTIVE [None]
  - GASTROENTERITIS VIRAL [None]
  - INJECTION SITE SWELLING [None]
  - NECROTISING FASCIITIS [None]
  - OEDEMA PERIPHERAL [None]
  - ONYCHOCLASIS [None]
  - SEPSIS [None]
  - SKIN HYPERTROPHY [None]
  - STAPHYLOCOCCAL SKIN INFECTION [None]
